FAERS Safety Report 12373220 (Version 2)
Quarter: 2016Q3

REPORT INFORMATION
  Report Type: Spontaneous
  Country: US (occurrence: US)
  Receive Date: 20160516
  Receipt Date: 20160712
  Transmission Date: 20161109
  Serious: Yes (Other)
  Sender: FDA-Public Use
  Company Number: US-B.I. PHARMACEUTICALS,INC./RIDGEFIELD-2016-BI-30333BP

PATIENT
  Age: 73 Year
  Sex: Female

DRUGS (3)
  1. TRADJENTA [Suspect]
     Active Substance: LINAGLIPTIN
     Indication: DIABETES MELLITUS
     Dosage: 5 MG
     Route: 048
     Dates: start: 2014
  2. LISINOPRIL. [Concomitant]
     Active Substance: LISINOPRIL
     Indication: HYPERTENSION
     Dosage: 2 ANZ
     Route: 048
  3. BISOPROLOL-HCT [Concomitant]
     Indication: HYPERTENSION
     Dosage: DOSE PER APPLICATION/DAILY DOSE: 10MG/6.25 MG
     Route: 048
     Dates: start: 201604

REACTIONS (4)
  - Retinal tear [Not Recovered/Not Resolved]
  - Gait disturbance [Recovered/Resolved]
  - Hypertension [Recovered/Resolved]
  - Arthralgia [Not Recovered/Not Resolved]

NARRATIVE: CASE EVENT DATE: 201508
